FAERS Safety Report 17667451 (Version 5)
Quarter: 2022Q1

REPORT INFORMATION
  Report Type: Report from Study
  Country: CA (occurrence: CA)
  Receive Date: 20200414
  Receipt Date: 20220218
  Transmission Date: 20220423
  Serious: Yes (Hospitalization, Other)
  Sender: FDA-Public Use
  Company Number: CA-JNJFOC-20200408761

PATIENT
  Age: 57 Year
  Sex: Female
  Weight: 49 kg

DRUGS (2)
  1. REMICADE [Suspect]
     Active Substance: INFLIXIMAB
     Indication: Crohn^s disease
     Route: 042
     Dates: start: 201504
  2. REMICADE [Suspect]
     Active Substance: INFLIXIMAB
     Dosage: RECEIVED INFUSION SINCE APR-2015. RECEIVED INFUSION ON 15-OCT-2021, RECEIVED INFUSION ON 11-NOV-2021
     Route: 042
     Dates: start: 202009

REACTIONS (6)
  - Thermal burn [Unknown]
  - Skin cancer [Unknown]
  - Malignant neoplasm progression [Unknown]
  - Skin ulcer [Not Recovered/Not Resolved]
  - Abdominal discomfort [Unknown]
  - Product dose omission issue [Unknown]

NARRATIVE: CASE EVENT DATE: 20211210
